FAERS Safety Report 6449201-1 (Version None)
Quarter: 2009Q4

REPORT INFORMATION
  Report Type: 
  Country: None (occurrence: None)
  Receive Date: 20091120
  Receipt Date: 20091112
  Transmission Date: 20100525
  Serious: Yes (Hospitalization, Other)
  Sender: FDA-Public Use
  Company Number: PHHO2009DE06312

PATIENT
  Sex: Male
  Weight: 100 kg

DRUGS (4)
  1. RAD 666 RAD+TAB [Suspect]
     Indication: RENAL TRANSPLANT
     Dosage: 0.5 MG, BID
     Route: 048
     Dates: start: 20081208
  2. CYCLOSPORINE [Suspect]
     Indication: RENAL TRANSPLANT
     Dosage: 25 MG, BID
     Route: 048
     Dates: start: 20080910, end: 20090729
  3. MYFORTIC [Suspect]
     Indication: RENAL TRANSPLANT
     Dosage: 52 MG, BID
     Route: 048
     Dates: start: 20080910
  4. URBASON [Suspect]
     Indication: RENAL TRANSPLANT
     Dosage: 2.4 MG, QD
     Route: 048
     Dates: start: 20080910

REACTIONS (6)
  - BLOOD CREATININE INCREASED [None]
  - HUMAN POLYOMAVIRUS INFECTION [None]
  - KIDNEY TRANSPLANT REJECTION [None]
  - NEPHROPATHY TOXIC [None]
  - POLYOMAVIRUS-ASSOCIATED NEPHROPATHY [None]
  - RENAL IMPAIRMENT [None]
